FAERS Safety Report 22880403 (Version 2)
Quarter: 2023Q4

REPORT INFORMATION
  Report Type: Spontaneous
  Country: US (occurrence: US)
  Receive Date: 20230829
  Receipt Date: 20231130
  Transmission Date: 20240109
  Serious: Yes (Other)
  Sender: FDA-Public Use
  Company Number: US-BRISTOL-MYERS SQUIBB COMPANY-2023-121371

PATIENT
  Age: 43 Year
  Sex: Male

DRUGS (1)
  1. ORENCIA [Suspect]
     Active Substance: ABATACEPT
     Indication: Rheumatoid arthritis
     Route: 058
     Dates: start: 20230313

REACTIONS (5)
  - Syncope [Recovered/Resolved]
  - Pallor [Recovered/Resolved]
  - Libido decreased [Recovered/Resolved]
  - Fatigue [Recovered/Resolved]
  - Night sweats [Recovered/Resolved]
